FAERS Safety Report 4551347-X (Version None)
Quarter: 2005Q1

REPORT INFORMATION
  Report Type: 
  Country: None (occurrence: None)
  Receive Date: 20050107
  Receipt Date: 20041226
  Transmission Date: 20050727
  Serious: Yes (Hospitalization)
  Sender: FDA-Public Use
  Company Number: FABR-10917

PATIENT
  Age: 83 Year
  Sex: Male
  Weight: 46 kg

DRUGS (11)
  1. FABRAZYME [Suspect]
     Indication: FABRY'S DISEASE
     Dosage: 45 MG Q2WKS IV
     Route: 042
     Dates: start: 20010322, end: 20041125
  2. ASPIRIN [Concomitant]
  3. ACETAMINOPHEN [Concomitant]
  4. ENALAPRIL MALEATE [Concomitant]
  5. PIMOBENDAN [Concomitant]
  6. NICORANDIL [Concomitant]
  7. SODIUM ALGINATE [Concomitant]
  8. FUROSEMIDE [Concomitant]
  9. SPIRONOLACTONE [Concomitant]
  10. CARVEDILOL [Concomitant]
  11. OMEPRAZOLE [Concomitant]

REACTIONS (10)
  - BASE EXCESS [None]
  - BLOOD UREA INCREASED [None]
  - C-REACTIVE PROTEIN INCREASED [None]
  - CARDIAC FAILURE CONGESTIVE [None]
  - CARDIOMEGALY [None]
  - MITRAL VALVE INCOMPETENCE [None]
  - PNEUMONIA [None]
  - PULMONARY CONGESTION [None]
  - RENAL FUNCTION TEST ABNORMAL [None]
  - TRICUSPID VALVE INCOMPETENCE [None]
